FAERS Safety Report 11299240 (Version 1)
Quarter: 2015Q3

REPORT INFORMATION
  Report Type: Spontaneous
  Country: US (occurrence: US)
  Receive Date: 20150722
  Receipt Date: 20150722
  Transmission Date: 20151125
  Serious: No
  Sender: FDA-Public Use
  Company Number: US-ELI_LILLY_AND_COMPANY-US201208007218

PATIENT
  Age: 85 Year
  Sex: Female

DRUGS (7)
  1. HUMATROPE [Suspect]
     Active Substance: SOMATROPIN
  2. HUMATROPE [Suspect]
     Active Substance: SOMATROPIN
     Dosage: 0.2 MG, QD
  3. HUMATROPE [Suspect]
     Active Substance: SOMATROPIN
  4. HUMATROPE [Suspect]
     Active Substance: SOMATROPIN
  5. HUMATROPE [Suspect]
     Active Substance: SOMATROPIN
  6. HUMATROPE [Suspect]
     Active Substance: SOMATROPIN
  7. HUMATROPE [Suspect]
     Active Substance: SOMATROPIN

REACTIONS (1)
  - Varicose vein operation [Unknown]

NARRATIVE: CASE EVENT DATE: 20120814
